FAERS Safety Report 5770448-1 (Version None)
Quarter: 2008Q2

REPORT INFORMATION
  Report Type: 
  Country: None (occurrence: None)
  Receive Date: 20080613
  Receipt Date: 20080501
  Transmission Date: 20081010
  Serious: No
  Sender: FDA-Public Use
  Company Number: US-ABBOTT-08P-163-0449832-00

PATIENT
  Sex: Female
  Weight: 102.15 kg

DRUGS (8)
  1. HUMIRA [Suspect]
     Indication: PSORIATIC ARTHROPATHY
     Route: 058
     Dates: start: 20080401
  2. METHOTREXATE [Concomitant]
     Indication: PSORIATIC ARTHROPATHY
     Route: 058
  3. FOLIC ACID [Concomitant]
     Indication: PSORIATIC ARTHROPATHY
     Route: 048
  4. CALCIUM FOLINATE [Concomitant]
     Indication: DRUG USE FOR UNKNOWN INDICATION
     Dosage: 8 HOURS AFTER MTX
  5. LOTREL [Concomitant]
     Indication: HYPERTENSION
     Route: 048
  6. ZIPRASIDONE HYDROCHLORIDE [Concomitant]
     Indication: BIPOLAR DISORDER
     Route: 048
  7. PAROXETINE HCL [Concomitant]
     Indication: DEPRESSION
     Route: 048
  8. PAROXETINE HCL [Concomitant]
     Indication: ANXIETY DISORDER

REACTIONS (2)
  - HYPOAESTHESIA [None]
  - PARAESTHESIA [None]
